FAERS Safety Report 11835845 (Version 1)
Quarter: 2015Q4

REPORT INFORMATION
  Report Type: Spontaneous
  Country: None (occurrence: None)
  Receive Date: 20151214
  Receipt Date: 20151214
  Transmission Date: 20160305
  Serious: Yes (Life-Threatening, Hospitalization)
  Sender: FDA-Public Use
  Company Number: None

PATIENT
  Age: 51 Year
  Sex: Male

DRUGS (1)
  1. HARVONI [Suspect]
     Active Substance: LEDIPASVIR\SOFOSBUVIR
     Indication: HEPATITIS C
     Dosage: ONE
     Route: 048
     Dates: start: 20151013, end: 20151028

REACTIONS (7)
  - Acute kidney injury [None]
  - Renal amyloidosis [None]
  - Nausea [None]
  - Malaise [None]
  - Headache [None]
  - Deep vein thrombosis [None]
  - Pneumonia [None]

NARRATIVE: CASE EVENT DATE: 20151116
